FAERS Safety Report 21531737 (Version 1)
Quarter: 2022Q4

REPORT INFORMATION
  Report Type: Report from Study
  Country: US (occurrence: US)
  Receive Date: 20221031
  Receipt Date: 20221031
  Transmission Date: 20230113
  Serious: Yes (Other)
  Sender: FDA-Public Use
  Company Number: US-ABBVIE-22K-163-4379980-00

PATIENT
  Age: 68 Year
  Sex: Male
  Weight: 95.25 kg

DRUGS (3)
  1. HUMIRA [Suspect]
     Active Substance: ADALIMUMAB
     Indication: Psoriasis
     Dosage: CITRATE FREE?STRENGTH 40 MG
     Route: 058
  2. HUMIRA [Suspect]
     Active Substance: ADALIMUMAB
     Indication: Psoriasis
  3. PFIZER-BIONTECH COVID-19 VACCINE [Suspect]
     Active Substance: TOZINAMERAN
     Indication: COVID-19 immunisation
     Dosage: TIME INTERVAL: 1 TOTAL
     Route: 030

REACTIONS (6)
  - Cataract [Unknown]
  - COVID-19 [Not Recovered/Not Resolved]
  - Illness [Unknown]
  - COVID-19 [Recovered/Resolved]
  - Sinusitis [Unknown]
  - Eye operation [Unknown]

NARRATIVE: CASE EVENT DATE: 20201231
